FAERS Safety Report 7247082-X (Version None)
Quarter: 2011Q1

REPORT INFORMATION
  Report Type: 
  Country: None (occurrence: None)
  Receive Date: 20110127
  Receipt Date: 20091204
  Transmission Date: 20110831
  Serious: No
  Sender: FDA-Public Use
  Company Number: US-BAUSCH-2009BL006379

PATIENT
  Age: 53 Year
  Sex: Male

DRUGS (3)
  1. ALAWAY [Suspect]
     Indication: SEASONAL ALLERGY
     Route: 047
     Dates: start: 20091101, end: 20091128
  2. MULTI-VITAMINS [Concomitant]
     Route: 048
  3. NASONEX [Concomitant]
     Indication: HYPERSENSITIVITY

REACTIONS (1)
  - INSTILLATION SITE PAIN [None]
